FAERS Safety Report 11307209 (Version 3)
Quarter: 2015Q4

REPORT INFORMATION
  Report Type: Report from Study
  Country: DE (occurrence: DE)
  Receive Date: 20150723
  Receipt Date: 20151026
  Transmission Date: 20160304
  Serious: Yes (Hospitalization)
  Sender: FDA-Public Use
  Company Number: DE-ABBVIE-15P-062-1429228-00

PATIENT
  Sex: Female
  Weight: 66 kg

DRUGS (7)
  1. GUTRON [Concomitant]
     Active Substance: MIDODRINE
     Indication: PRODUCT USED FOR UNKNOWN INDICATION
     Route: 065
  2. MIRTAZAPINE. [Concomitant]
     Active Substance: MIRTAZAPINE
     Indication: DEPRESSION
     Route: 065
  3. DOPADURA [Concomitant]
     Active Substance: CARBIDOPA\LEVODOPA
     Dosage: 200/50MG RETARD
  4. DOPADURA [Concomitant]
     Active Substance: CARBIDOPA\LEVODOPA
     Indication: PRODUCT USED FOR UNKNOWN INDICATION
     Dosage: 200/50MG RETARD
     Route: 065
  5. DUODOPA [Suspect]
     Active Substance: CARBIDOPA\LEVODOPA
     Indication: PARKINSON^S DISEASE
     Dosage: MD 2ML, CRD 2.6ML/H, ED 1.5 ML AS REQUIRED
     Route: 050
     Dates: start: 20140922
  6. SPASMEX [Concomitant]
     Active Substance: TROSPIUM CHLORIDE
     Indication: PRODUCT USED FOR UNKNOWN INDICATION
     Route: 065
  7. AMANTADINE [Concomitant]
     Active Substance: AMANTADINE
     Indication: PRODUCT USED FOR UNKNOWN INDICATION
     Route: 065

REACTIONS (5)
  - Laceration [Unknown]
  - Gait disturbance [Unknown]
  - Stress [Not Recovered/Not Resolved]
  - Depression [Recovered/Resolved]
  - Fall [Unknown]
